FAERS Safety Report 5693173-4 (Version None)
Quarter: 2008Q2

REPORT INFORMATION
  Report Type: 
  Country: None (occurrence: None)
  Receive Date: 20080403
  Receipt Date: 20080310
  Transmission Date: 20081010
  Serious: Yes (Death, Hospitalization)
  Sender: FDA-Public Use
  Company Number: FR-BAYER-200710335BFR

PATIENT
  Age: 71 Year
  Sex: Male

DRUGS (7)
  1. CIPROFLOXACIN [Suspect]
     Indication: ESCHERICHIA INFECTION
     Route: 048
     Dates: start: 20070209, end: 20070210
  2. CLAFORAN [Suspect]
     Indication: ESCHERICHIA INFECTION
     Route: 042
     Dates: start: 20070205, end: 20070209
  3. AVLOCARDYL [Concomitant]
     Indication: UNEVALUABLE EVENT
     Dosage: TOTAL DAILY DOSE: 20 MG  UNIT DOSE: 40 MG
     Route: 048
  4. LASILIX [Concomitant]
     Indication: OEDEMA
  5. ALDACTONE [Concomitant]
     Indication: OEDEMA
  6. INIPOMP [Concomitant]
     Indication: DRUG USE FOR UNKNOWN INDICATION
     Route: 065
  7. CEFTRIAXONE [Concomitant]
     Indication: DRUG USE FOR UNKNOWN INDICATION
     Route: 065

REACTIONS (1)
  - TOXIC EPIDERMAL NECROLYSIS [None]
